FAERS Safety Report 7460312-4 (Version None)
Quarter: 2011Q2

REPORT INFORMATION
  Report Type: 
  Country: None (occurrence: None)
  Receive Date: 20110505
  Receipt Date: 20110429
  Transmission Date: 20111010
  Serious: Yes (Hospitalization)
  Sender: FDA-Public Use
  Company Number: A0838799A

PATIENT
  Age: 57 Year
  Sex: Male
  Weight: 97.7 kg

DRUGS (15)
  1. PROTONIX [Concomitant]
  2. LIPITOR [Concomitant]
  3. XANAX [Concomitant]
  4. HYDROCHLOROTHIAZIDE [Concomitant]
  5. NEXIUM [Concomitant]
  6. NOVOLOG [Concomitant]
  7. NORVASC [Concomitant]
  8. GLUCOPHAGE [Concomitant]
  9. AVANDIA [Suspect]
     Indication: DIABETES MELLITUS
     Route: 048
     Dates: start: 20011130
  10. TOPROL-XL [Concomitant]
  11. GLUCOTROL [Concomitant]
  12. LOVASTATIN [Concomitant]
  13. LOPRESSOR [Concomitant]
  14. PLAVIX [Concomitant]
  15. ATACAND [Concomitant]

REACTIONS (4)
  - CORONARY ARTERY DISEASE [None]
  - DISABILITY [None]
  - ASTHENIA [None]
  - MYOCARDIAL INFARCTION [None]
